FAERS Safety Report 4958583-9 (Version None)
Quarter: 2006Q1

REPORT INFORMATION
  Report Type: 
  Country: None (occurrence: None)
  Receive Date: 20060127
  Receipt Date: 20051017
  Transmission Date: 20060701
  Serious: Yes (Hospitalization)
  Sender: FDA-Public Use
  Company Number: 2005-US-00880

PATIENT
  Age: 30 Year
  Sex: Female

DRUGS (4)
  1. CLOZAPINE [Suspect]
     Dosage: 300 MG, ORAL
     Route: 048
     Dates: start: 20010717, end: 20010718
  2. TIZANIDINE HYDORCHLORIDE [Concomitant]
  3. PROPANTHELINE BROMIDE [Concomitant]
  4. BALALAZIDE SODIUM [Concomitant]

REACTIONS (6)
  - AMNESIA [None]
  - HALLUCINATION [None]
  - HEADACHE [None]
  - LOSS OF CONSCIOUSNESS [None]
  - MEDICATION ERROR [None]
  - MUSCLE SPASMS [None]
